FAERS Safety Report 15803711 (Version 5)
Quarter: 2021Q2

REPORT INFORMATION
  Report Type: Report from Study
  Country: FR (occurrence: FR)
  Receive Date: 20190109
  Receipt Date: 20210430
  Transmission Date: 20210716
  Serious: Yes (Other)
  Sender: FDA-Public Use
  Company Number: FR-GILEAD-2019-0383759

PATIENT
  Age: 84 Year
  Sex: Male
  Weight: 70.8 kg

DRUGS (12)
  1. IDELALISIB [Suspect]
     Active Substance: IDELALISIB
     Indication: WALDENSTROM^S MACROGLOBULINAEMIA
     Dosage: 200 MG, QD
     Route: 048
     Dates: start: 20171010, end: 20171028
  2. IDELALISIB [Suspect]
     Active Substance: IDELALISIB
     Dosage: 100 MG, BID
     Route: 065
     Dates: start: 20180319
  3. KENZEN [Concomitant]
     Active Substance: CANDESARTAN CILEXETIL
     Indication: HYPERTENSION
     Dosage: 8 MG, QD
     Route: 048
  4. OBINUTUZUMAB. [Suspect]
     Active Substance: OBINUTUZUMAB
     Dosage: UNK
     Route: 065
     Dates: start: 20180611
  5. OBINUTUZUMAB. [Suspect]
     Active Substance: OBINUTUZUMAB
     Dosage: UNK
     Route: 065
     Dates: start: 20180709
  6. SERETIDE [Concomitant]
     Active Substance: FLUTICASONE PROPIONATE\SALMETEROL XINAFOATE
     Indication: EMPHYSEMA
     Dosage: 500 UG, QD
  7. IDELALISIB [Suspect]
     Active Substance: IDELALISIB
     Dosage: UNK
     Route: 048
     Dates: end: 20190916
  8. OBINUTUZUMAB. [Suspect]
     Active Substance: OBINUTUZUMAB
     Dosage: 1000 MG
     Route: 042
     Dates: start: 20180319
  9. OBINUTUZUMAB. [Suspect]
     Active Substance: OBINUTUZUMAB
     Dosage: UNK
     Route: 065
     Dates: start: 20180416
  10. OBINUTUZUMAB. [Suspect]
     Active Substance: OBINUTUZUMAB
     Dosage: UNK
     Route: 065
     Dates: start: 20180514
  11. SPIRIVA [Concomitant]
     Active Substance: TIOTROPIUM BROMIDE MONOHYDRATE
     Indication: CHRONIC OBSTRUCTIVE PULMONARY DISEASE
     Dosage: 18 UG, QD
     Route: 048
  12. OBINUTUZUMAB. [Suspect]
     Active Substance: OBINUTUZUMAB
     Indication: WALDENSTROM^S MACROGLOBULINAEMIA
     Dosage: UNK
     Route: 041
     Dates: start: 20171010, end: 20171028

REACTIONS (3)
  - Lentigo maligna [Recovered/Resolved]
  - Bladder transitional cell carcinoma [Recovered/Resolved]
  - Basal cell carcinoma [Recovered/Resolved]

NARRATIVE: CASE EVENT DATE: 20190101
